FAERS Safety Report 25104763 (Version 1)
Quarter: 2025Q1

REPORT INFORMATION
  Report Type: Spontaneous
  Country: US (occurrence: None)
  Receive Date: 20250320
  Receipt Date: 20250320
  Transmission Date: 20250409
  Serious: Yes (Disabling)
  Sender: FDA-CTU
  Company Number: None

PATIENT
  Age: 32 Year
  Sex: Female

DRUGS (1)
  1. SUN BUM SUNSCREEN LIP BALM BROAD SPECTRUM SPF 30 MANGO [Suspect]
     Active Substance: AVOBENZONE\HOMOSALATE\OCTISALATE\OCTOCRYLENE
     Indication: Chapped lips
     Route: 061
     Dates: start: 20250309, end: 20250313

REACTIONS (6)
  - Lip erythema [None]
  - Oral discomfort [None]
  - Paraesthesia oral [None]
  - Lip swelling [None]
  - Lip blister [None]
  - Hypoaesthesia oral [None]

NARRATIVE: CASE EVENT DATE: 20250310
